FAERS Safety Report 22000835 (Version 1)
Quarter: 2023Q1

REPORT INFORMATION
  Report Type: Spontaneous
  Country: CA (occurrence: CA)
  Receive Date: 20230216
  Receipt Date: 20230216
  Transmission Date: 20230418
  Serious: Yes (Other)
  Sender: FDA-Public Use
  Company Number: CA-IGSA-BIG0022161

PATIENT
  Age: 88 Year
  Sex: Male
  Weight: 73.8 kg

DRUGS (3)
  1. GAMUNEX [Suspect]
     Active Substance: HUMAN IMMUNOGLOBULIN G
     Indication: Immune thrombocytopenia
     Dosage: 20 GRAM, TOTAL
     Route: 042
     Dates: start: 20221230, end: 20221230
  2. GAMUNEX [Suspect]
     Active Substance: HUMAN IMMUNOGLOBULIN G
     Dosage: 20 GRAM, TOTAL
     Route: 042
     Dates: start: 20221229, end: 20221229
  3. GAMUNEX [Suspect]
     Active Substance: HUMAN IMMUNOGLOBULIN G
     Dosage: 10 GRAM, TOTAL
     Route: 042
     Dates: start: 20221230, end: 20221230

REACTIONS (6)
  - Hypoxia [Unknown]
  - Tachycardia [Unknown]
  - Pyrexia [Unknown]
  - Vision blurred [Unknown]
  - Dizziness [Unknown]
  - Blood pressure decreased [Unknown]

NARRATIVE: CASE EVENT DATE: 20221230
